FAERS Safety Report 6272018-8 (Version None)
Quarter: 2009Q3

REPORT INFORMATION
  Report Type: 
  Country: None (occurrence: None)
  Receive Date: 20090717
  Receipt Date: 20090707
  Transmission Date: 20100115
  Serious: Yes (Hospitalization)
  Sender: FDA-Public Use
  Company Number: A0771651A

PATIENT
  Age: 67 Year
  Sex: Male
  Weight: 105.9 kg

DRUGS (12)
  1. AVANDIA [Suspect]
     Indication: DIABETES MELLITUS
     Dosage: 8MG TWICE PER DAY
     Route: 048
     Dates: start: 20010123, end: 20040101
  2. GLUCOPHAGE [Concomitant]
  3. METFORMIN HCL [Concomitant]
  4. LIPITOR [Concomitant]
  5. ENALAPRIL MALEATE [Concomitant]
  6. ATENOLOL [Concomitant]
  7. GLUCOTROL [Concomitant]
  8. PREVACID [Concomitant]
  9. NEXIUM [Concomitant]
  10. ADVAIR HFA [Concomitant]
  11. COMBIVENT [Concomitant]
  12. FLOMAX [Concomitant]

REACTIONS (2)
  - CARDIAC FAILURE CONGESTIVE [None]
  - CONGESTIVE CARDIOMYOPATHY [None]
